FAERS Safety Report 17210053 (Version 2)
Quarter: 2020Q1

REPORT INFORMATION
  Report Type: Spontaneous
  Country: EC (occurrence: EC)
  Receive Date: 20191227
  Receipt Date: 20200113
  Transmission Date: 20200409
  Serious: Yes (Death, Hospitalization, Other)
  Sender: FDA-Public Use
  Company Number: EC-AMGEN-ECUSP2019215344

PATIENT
  Age: 66 Year
  Sex: Female
  Weight: 48 kg

DRUGS (2)
  1. NEULASTIM [Suspect]
     Active Substance: PEGFILGRASTIM
     Indication: CERVIX CARCINOMA
     Dosage: 6 MILLIGRAM, Q3WK
     Route: 058
     Dates: start: 20191017, end: 20191108
  2. NEULASTIM [Suspect]
     Active Substance: PEGFILGRASTIM
     Indication: UTERINE CANCER

REACTIONS (5)
  - Neutropenia [Unknown]
  - Diarrhoea [Unknown]
  - Pelvic pain [Unknown]
  - Vaginal haemorrhage [Fatal]
  - Anaemia [Unknown]

NARRATIVE: CASE EVENT DATE: 20191202
